FAERS Safety Report 19005213 (Version 1)
Quarter: 2021Q1

REPORT INFORMATION
  Report Type: Spontaneous
  Country: GB (occurrence: GB)
  Receive Date: 20210313
  Receipt Date: 20210313
  Transmission Date: 20210420
  Serious: Yes (Other)
  Sender: FDA-Public Use
  Company Number: GB-TORRENT-00025195

PATIENT
  Age: 3 Year
  Sex: Male

DRUGS (1)
  1. LAMOTRIGINE. [Suspect]
     Active Substance: LAMOTRIGINE
     Indication: SEIZURE
     Dosage: UNKNOWN

REACTIONS (2)
  - Developmental regression [Recovering/Resolving]
  - Condition aggravated [Recovering/Resolving]
